FAERS Safety Report 8750635 (Version 3)
Quarter: 2013Q1

REPORT INFORMATION
  Report Type: Spontaneous
  Country: US (occurrence: None)
  Receive Date: 20120813
  Receipt Date: 20121127
  Transmission Date: 20140127
  Serious: Yes (Hospitalization, Disabling)
  Sender: FDA-Public Use
  Company Number: ACO_31355_2012

PATIENT
  Age: 61 Year
  Sex: Female
  Weight: 54.4 kg

DRUGS (8)
  1. AMPYRA [Suspect]
     Indication: MULTIPLE SCLEROSIS
     Dosage: 10 MG, BID, ORAL
     Route: 048
     Dates: start: 20120117, end: 201207
  2. NEURONTIN [Concomitant]
  3. CELEXA (CITALOPRAM HYDROBROMIDE) [Concomitant]
  4. FLUDROCORTISONE (FLUDROCORTISONE ACETATE) [Concomitant]
  5. COPAXONE (GLATIRAMER ACETATE) [Concomitant]
  6. WELLBUTRIN [Concomitant]
  7. VALTREX (VALACICLOVIR HYDROCHLORIDE) [Concomitant]
  8. HYDROCORTISONE (HYDROCORTISONE) [Concomitant]

REACTIONS (4)
  - Temperature intolerance [None]
  - Multiple sclerosis relapse [None]
  - Fatigue [None]
  - Stress [None]
